FAERS Safety Report 5527440-1 (Version None)
Quarter: 2007Q4

REPORT INFORMATION
  Report Type: 
  Country: None (occurrence: None)
  Receive Date: 20071123
  Receipt Date: 20071113
  Transmission Date: 20080405
  Serious: Yes (Other)
  Sender: FDA-Public Use
  Company Number: 230247J07USA

PATIENT
  Age: 37 Year
  Sex: Female

DRUGS (1)
  1. REBIF [Suspect]
     Indication: MULTIPLE SCLEROSIS
     Dosage: SUBCUTANEOUS
     Route: 058
     Dates: start: 20070709

REACTIONS (4)
  - CONVULSION [None]
  - DEPRESSION [None]
  - MEMORY IMPAIRMENT [None]
  - SELF-INJURIOUS IDEATION [None]
